FAERS Safety Report 17997788 (Version 1)
Quarter: 2020Q3

REPORT INFORMATION
  Report Type: Spontaneous
  Country: US (occurrence: US)
  Receive Date: 20200709
  Receipt Date: 20200709
  Transmission Date: 20201103
  Serious: No
  Sender: FDA-Public Use
  Company Number: US-NOVAST LABORATORIES LTD.-2019NOV000021

PATIENT
  Age: 68 Year
  Sex: Female

DRUGS (1)
  1. PROBENECID AND COLCHICINE [Suspect]
     Active Substance: COLCHICINE\PROBENECID
     Indication: PRODUCT USED FOR UNKNOWN INDICATION
     Dosage: 500/0.5 MILLIGRAM, QD
     Route: 065
     Dates: end: 201908

REACTIONS (7)
  - Pollakiuria [Unknown]
  - Intentional product use issue [Unknown]
  - Oral pain [Recovering/Resolving]
  - Flatulence [Unknown]
  - Thirst [Unknown]
  - Dyspepsia [Unknown]
  - Diarrhoea [Unknown]

NARRATIVE: CASE EVENT DATE: 201907
